FAERS Safety Report 24758349 (Version 1)
Quarter: 2024Q4

REPORT INFORMATION
  Report Type: Other
  Country: PL (occurrence: PL)
  Receive Date: 20241220
  Receipt Date: 20241220
  Transmission Date: 20250115
  Serious: Yes (Other)
  Sender: B BRAUN
  Company Number: PL-B.Braun Medical Inc.-2167478

PATIENT
  Age: 30 Year
  Sex: Female

DRUGS (13)
  1. SODIUM CHLORIDE [Suspect]
     Active Substance: SODIUM CHLORIDE
  2. ACYCLOVIR [Suspect]
     Active Substance: ACYCLOVIR
  3. MESALAMINE [Concomitant]
     Active Substance: MESALAMINE
  4. SULFAMETHOXAZOLE AND TRIMETHOPRIM [Suspect]
     Active Substance: SULFAMETHOXAZOLE\TRIMETHOPRIM
  5. PANTOPRAZOLE SODIUM [Suspect]
     Active Substance: PANTOPRAZOLE SODIUM
  6. NADROPARIN [Suspect]
     Active Substance: NADROPARIN
  7. MUPIROCIN [Suspect]
     Active Substance: MUPIROCIN
  8. METHYLPREDNISOLONE [Suspect]
     Active Substance: METHYLPREDNISOLONE
  9. DEXAMETHASONE [Suspect]
     Active Substance: DEXAMETHASONE
  10. ETHAMSYLATE [Suspect]
     Active Substance: ETHAMSYLATE
  11. CLOBETASOL PROPIONATE [Suspect]
     Active Substance: CLOBETASOL PROPIONATE
  12. CYCLOSPORINE [Suspect]
     Active Substance: CYCLOSPORINE
  13. CEFTRIAXONE [Suspect]
     Active Substance: CEFTRIAXONE

REACTIONS (2)
  - Diarrhoea [Unknown]
  - Colitis ulcerative [Unknown]
